FAERS Safety Report 12206053 (Version 2)
Quarter: 2016Q2

REPORT INFORMATION
  Report Type: Spontaneous
  Country: US (occurrence: US)
  Receive Date: 20160323
  Receipt Date: 20160428
  Transmission Date: 20160815
  Serious: Yes (Hospitalization, Other)
  Sender: FDA-Public Use
  Company Number: US-ASTRAZENECA-2016SE28680

PATIENT
  Age: 39 Year
  Sex: Female
  Weight: 52 kg

DRUGS (18)
  1. BRILINTA [Suspect]
     Active Substance: TICAGRELOR
     Indication: ACUTE CORONARY SYNDROME
     Route: 048
  2. TYLENOL [Concomitant]
     Active Substance: ACETAMINOPHEN
     Indication: PAIN
     Route: 048
  3. ALBUTEROL. [Concomitant]
     Active Substance: ALBUTEROL
     Indication: WHEEZING
     Dosage: INHALE TWO PUFFS INTO THE LUNGS EVERY SIX HOURS AS NEEDED
  4. VITAMIN D3 [Concomitant]
     Active Substance: CHOLECALCIFEROL
     Route: 048
  5. DEPLIN [Concomitant]
     Active Substance: LEVOMEFOLATE CALCIUM
     Route: 048
  6. COREG [Concomitant]
     Active Substance: CARVEDILOL
     Route: 048
  7. NICODERM CQ [Concomitant]
     Active Substance: NICOTINE
     Dosage: 21 MG/24HR
  8. OMEGA 3 FISH OIL [Concomitant]
     Active Substance: FISH OIL\OMEGA-3 FATTY ACIDS
  9. KLONOPIN [Concomitant]
     Active Substance: CLONAZEPAM
     Route: 048
  10. FLONASE [Concomitant]
     Active Substance: FLUTICASONE PROPIONATE
     Route: 045
  11. NITRO-DUR [Concomitant]
     Active Substance: NITROGLYCERIN
     Dosage: 0.2 MG/HR
  12. NITROSTAT [Concomitant]
     Active Substance: NITROGLYCERIN
  13. NITROGLYCERIN. [Concomitant]
     Active Substance: NITROGLYCERIN
  14. ASPIRIN. [Concomitant]
     Active Substance: ASPIRIN
     Route: 048
  15. LIPITOR [Concomitant]
     Active Substance: ATORVASTATIN CALCIUM
     Route: 048
  16. BENADRYL [Concomitant]
     Active Substance: DIPHENHYDRAMINE HYDROCHLORIDE
     Indication: MULTIPLE ALLERGIES
     Route: 048
  17. B COMPLEX VITAMINS PLUS [Concomitant]
     Route: 048
  18. ZOVIRAX [Concomitant]
     Active Substance: ACYCLOVIR

REACTIONS (4)
  - Angina pectoris [Not Recovered/Not Resolved]
  - Headache [Unknown]
  - Coronary artery disease [Unknown]
  - Acute coronary syndrome [Unknown]

NARRATIVE: CASE EVENT DATE: 201603
